FAERS Safety Report 21770482 (Version 3)
Quarter: 2023Q1

REPORT INFORMATION
  Report Type: Report from Study
  Country: CN (occurrence: None)
  Receive Date: 20221223
  Receipt Date: 20230220
  Transmission Date: 20230417
  Serious: Yes (Hospitalization)
  Sender: FDA-Public Use
  Company Number: CN-ROCHE-3168129

PATIENT
  Age: 65 Year
  Sex: Female
  Weight: 55 kg

DRUGS (5)
  1. ATEZOLIZUMAB [Suspect]
     Active Substance: ATEZOLIZUMAB
     Indication: Triple negative breast cancer
     Dosage: ON 05/AUG/2022MOST RECENT DOSE OF ATEZOLIZUMAB AE AND SAE WAS 840 MG, MOST RECENT DOSE PRIOR TO AE G
     Route: 041
     Dates: start: 20220805
  2. PACLITAXEL [Suspect]
     Active Substance: PACLITAXEL
     Indication: Triple negative breast cancer
     Dosage: ON 12/AUG/2022MOST RECENT DOSE OF PACLITAXEL AE AND SAE, LAST DOSE ADMINISTERED AT 121.8MG. MOST REC
     Route: 042
     Dates: start: 20220805
  3. PEGFILGRASTIM [Suspect]
     Active Substance: PEGFILGRASTIM
     Indication: Triple negative breast cancer
     Route: 058
     Dates: start: 20221117, end: 20221117
  4. EPIRUBICIN [Suspect]
     Active Substance: EPIRUBICIN
     Indication: Triple negative breast cancer
     Dosage: LAST DOSE GIVEN AT 137.8 MG, MOST RECENT DOSE ON 03/DEC/2022
     Route: 042
     Dates: start: 20221116
  5. CYCLOPHOSPHAMIDE [Suspect]
     Active Substance: CYCLOPHOSPHAMIDE
     Indication: Triple negative breast cancer
     Dosage: LAST  DOSE GIVEN AT 918.5 MG,MOST RECENT DOSE ON 03/DEC/2022
     Route: 042
     Dates: start: 20221116

REACTIONS (2)
  - Myelosuppression [Recovered/Resolved]
  - White blood cell count decreased [Recovered/Resolved]

NARRATIVE: CASE EVENT DATE: 20220818
